FAERS Safety Report 16155762 (Version 1)
Quarter: 2019Q2

REPORT INFORMATION
  Report Type: Spontaneous
  Country: US (occurrence: US)
  Receive Date: 20190404
  Receipt Date: 20190404
  Transmission Date: 20190711
  Serious: No
  Sender: FDA-Public Use
  Company Number: US-UNITED THERAPEUTICS-UNT-2019-005928

PATIENT
  Age: 74 Year
  Sex: Female
  Weight: 59.41 kg

DRUGS (2)
  1. REVATIO [Concomitant]
     Active Substance: SILDENAFIL CITRATE
     Indication: PRODUCT USED FOR UNKNOWN INDICATION
     Route: 065
  2. REMODULIN [Suspect]
     Active Substance: TREPROSTINIL
     Indication: PULMONARY ARTERIAL HYPERTENSION
     Dosage: 0.078 ?G/KG, CONTINUING
     Route: 058
     Dates: start: 20120605

REACTIONS (4)
  - Joint stiffness [Unknown]
  - Chills [Unknown]
  - Oxygen saturation decreased [Unknown]
  - Nausea [Unknown]

NARRATIVE: CASE EVENT DATE: 20190331
